FAERS Safety Report 5389226-0 (Version None)
Quarter: 2007Q3

REPORT INFORMATION
  Report Type: 
  Country: None (occurrence: None)
  Receive Date: 20070717
  Receipt Date: 20070712
  Transmission Date: 20080115
  Serious: Yes (Congenital Anomaly)
  Sender: FDA-Public Use
  Company Number: A0567259B

PATIENT
  Sex: Male
  Weight: 3.4 kg

DRUGS (2)
  1. PAXIL CR [Suspect]
     Indication: PANIC DISORDER
     Dosage: 25MG PER DAY
     Dates: start: 20020101
  2. COPAXONE [Concomitant]

REACTIONS (11)
  - ANKYLOGLOSSIA CONGENITAL [None]
  - ATRIAL SEPTAL DEFECT [None]
  - CARDIAC MURMUR [None]
  - DRUG EXPOSURE DURING PREGNANCY [None]
  - DRUG EXPOSURE VIA BREAST MILK [None]
  - HEART DISEASE CONGENITAL [None]
  - LACTATION DISORDER [None]
  - MILK ALLERGY [None]
  - NASOPHARYNGITIS [None]
  - PSYCHOMOTOR SKILLS IMPAIRED [None]
  - WHEEZING [None]
